FAERS Safety Report 11723940 (Version 1)
Quarter: 2015Q4

REPORT INFORMATION
  Report Type: Spontaneous
  Country: US (occurrence: US)
  Receive Date: 20151111
  Receipt Date: 20151111
  Transmission Date: 20160304
  Serious: Yes (Hospitalization)
  Sender: FDA-Public Use
  Company Number: US-TURING PHARMACEUTICALS-2015TNG00056

PATIENT
  Sex: Female

DRUGS (1)
  1. DARAPRIM [Suspect]
     Active Substance: PYRIMETHAMINE
     Indication: TOXOPLASMOSIS
     Dosage: 100 MG, 1X/DAY
     Route: 048
     Dates: start: 20150929

REACTIONS (1)
  - Hospitalisation [Unknown]
